FAERS Safety Report 20174156 (Version 2)
Quarter: 2022Q2

REPORT INFORMATION
  Report Type: Spontaneous
  Country: JP (occurrence: JP)
  Receive Date: 20211213
  Receipt Date: 20220524
  Transmission Date: 20220721
  Serious: Yes (Hospitalization)
  Sender: FDA-Public Use
  Company Number: JP-SPECGX-T202102658

PATIENT
  Age: 77 Year
  Sex: Male
  Weight: 42 kg

DRUGS (20)
  1. METHADONE [Suspect]
     Active Substance: METHADONE HYDROCHLORIDE
     Indication: Cancer pain
     Dosage: 20 MILLIGRAM, QD
     Route: 048
     Dates: start: 20211008, end: 20211013
  2. METHADONE [Suspect]
     Active Substance: METHADONE HYDROCHLORIDE
     Dosage: 30 MILLIGRAM, QD
     Route: 048
     Dates: start: 20211014, end: 20211026
  3. METHADONE [Suspect]
     Active Substance: METHADONE HYDROCHLORIDE
     Dosage: 15 MILLIGRAM, QD (5 MG, 10 MG)
     Route: 048
     Dates: start: 20211027
  4. OXYCODONE HYDROCHLORIDE [Concomitant]
     Active Substance: OXYCODONE HYDROCHLORIDE
     Indication: Cancer pain
     Dosage: 160 MILLIGRAM, QD
     Route: 048
     Dates: start: 20210419, end: 20211010
  5. OXYCODONE HYDROCHLORIDE [Concomitant]
     Active Substance: OXYCODONE HYDROCHLORIDE
     Dosage: 120 MILLIGRAM, QD
     Route: 048
     Dates: start: 20211011, end: 20211013
  6. OXYCODONE HYDROCHLORIDE [Concomitant]
     Active Substance: OXYCODONE HYDROCHLORIDE
     Dosage: 80 MILLIGRAM, QD
     Route: 048
     Dates: start: 20211014
  7. OXYCODONE HYDROCHLORIDE [Concomitant]
     Active Substance: OXYCODONE HYDROCHLORIDE
     Dosage: 60 MILLIGRAM, QD
     Route: 048
     Dates: start: 20211018
  8. OXYCODONE [Concomitant]
     Active Substance: OXYCODONE
     Indication: Cancer pain
     Dosage: 45 MILLIGRAM, QD
     Route: 058
     Dates: start: 20211019, end: 20211021
  9. OXYCODONE [Concomitant]
     Active Substance: OXYCODONE
     Dosage: 36 MILLIGRAM, QD
     Route: 058
     Dates: start: 20211022, end: 20211022
  10. OXYCODONE [Concomitant]
     Active Substance: OXYCODONE
     Dosage: 24 MILLIGRAM, QD
     Route: 058
     Dates: start: 20211023, end: 20211024
  11. OXYCODONE [Concomitant]
     Active Substance: OXYCODONE
     Dosage: 18 MILLIGRAM, QD
     Route: 058
     Dates: start: 20211025, end: 20211025
  12. OXYCODONE [Concomitant]
     Active Substance: OXYCODONE
     Dosage: 12 MILLIGRAM, QD
     Route: 058
     Dates: start: 20211026
  13. PREGABALIN [Concomitant]
     Active Substance: PREGABALIN
     Indication: Rectal cancer
     Dosage: 150 MILLIGRAM, QD
     Route: 048
     Dates: start: 20180813
  14. PREGABALIN [Concomitant]
     Active Substance: PREGABALIN
     Dosage: 75 MILLIGRAM, QD
     Route: 048
  15. ACETAMINOPHEN [Concomitant]
     Active Substance: ACETAMINOPHEN
     Indication: Rectal cancer
     Dosage: 2000 MILLIGRAM
     Route: 048
     Dates: start: 20211005
  16. ACETAMINOPHEN [Concomitant]
     Active Substance: ACETAMINOPHEN
     Dosage: 500 MILLIGRAM
     Route: 048
  17. AMITIZA [Concomitant]
     Active Substance: LUBIPROSTONE
     Indication: Constipation
     Dosage: 48 MICROGRAM
     Route: 048
     Dates: start: 20200120
  18. AMITIZA [Concomitant]
     Active Substance: LUBIPROSTONE
     Dosage: 24 MICROGRAM
     Route: 048
  19. ROZEREM [Concomitant]
     Active Substance: RAMELTEON
     Indication: Insomnia
     Dosage: 8 MILLIGRAM
     Route: 048
     Dates: start: 20200427
  20. ROZEREM [Concomitant]
     Active Substance: RAMELTEON
     Dosage: 8 MILLIGRAM
     Route: 048
     Dates: end: 20211209

REACTIONS (2)
  - Electrocardiogram QT prolonged [Recovered/Resolved]
  - Nausea [Unknown]

NARRATIVE: CASE EVENT DATE: 20211019
